FAERS Safety Report 5557957-5 (Version None)
Quarter: 2007Q4

REPORT INFORMATION
  Report Type: 
  Country: None (occurrence: None)
  Receive Date: 20071214
  Receipt Date: 20070612
  Transmission Date: 20080405
  Serious: Yes (Hospitalization)
  Sender: FDA-Public Use
  Company Number: FR-ROCHE-499035

PATIENT
  Age: 40 Year
  Sex: Male

DRUGS (12)
  1. CELLCEPT [Suspect]
     Indication: IGA NEPHROPATHY
     Route: 048
     Dates: start: 20050601, end: 20070520
  2. RENITEC [Suspect]
     Indication: DRUG USE FOR UNKNOWN INDICATION
     Route: 048
     Dates: end: 20070401
  3. NEORAL [Suspect]
     Indication: DRUG USE FOR UNKNOWN INDICATION
     Route: 048
     Dates: start: 20050601, end: 20070501
  4. NEORAL [Suspect]
     Route: 048
     Dates: start: 20070520
  5. AMLOR [Suspect]
     Indication: DRUG USE FOR UNKNOWN INDICATION
     Route: 048
     Dates: end: 20070702
  6. VASTEN [Suspect]
     Indication: DRUG USE FOR UNKNOWN INDICATION
     Route: 048
     Dates: start: 20050601
  7. SOLUPRED [Suspect]
     Indication: DRUG USE FOR UNKNOWN INDICATION
     Route: 048
  8. CORTICOSTEROIDS [Concomitant]
  9. STATIN [Concomitant]
     Dates: end: 20070429
  10. ANGIOTENSIN CONVERTING ENZYME INHIBITOR [Concomitant]
  11. CYCLOSPORINE [Concomitant]
  12. CYCLOSPORINE [Concomitant]
     Dosage: DOSE WAS DECREASED.

REACTIONS (7)
  - AFFECTIVE DISORDER [None]
  - CEREBELLAR SYNDROME [None]
  - CONVULSION [None]
  - DELUSION [None]
  - ENCEPHALOPATHY [None]
  - MENINGITIS [None]
  - OPSOCLONUS MYOCLONUS [None]
